FAERS Safety Report 5833584-7 (Version None)
Quarter: 2008Q3

REPORT INFORMATION
  Report Type: 
  Country: None (occurrence: None)
  Receive Date: 20080804
  Receipt Date: 20080804
  Transmission Date: 20090109
  Serious: Yes (Other)
  Sender: FDA-Public Use
  Company Number: None

PATIENT
  Age: 40 Year
  Sex: Female
  Weight: 61.2356 kg

DRUGS (2)
  1. MUCINEX [Suspect]
     Indication: PRODUCTIVE COUGH
     Dosage: ONE TAB. ONCE PO
     Route: 048
     Dates: start: 20080802, end: 20080803
  2. IBUPROFEN TABLETS [Concomitant]

REACTIONS (4)
  - DIARRHOEA [None]
  - FLATULENCE [None]
  - HEADACHE [None]
  - NAUSEA [None]
